FAERS Safety Report 16425430 (Version 1)
Quarter: 2019Q2

REPORT INFORMATION
  Report Type: Spontaneous
  Country: US (occurrence: US)
  Receive Date: 20190613
  Receipt Date: 20190613
  Transmission Date: 20190711
  Serious: No
  Sender: FDA-Public Use
  Company Number: US-BAYER-2019-114262

PATIENT
  Age: 72 Year
  Sex: Female

DRUGS (2)
  1. MIRALAX [Suspect]
     Active Substance: POLYETHYLENE GLYCOL 3350
     Indication: GASTROINTESTINAL DISORDER
     Dosage: AS LABELED DIRECTION
     Route: 048
  2. MIRALAX [Suspect]
     Active Substance: POLYETHYLENE GLYCOL 3350
     Indication: GASTROINTESTINAL DISORDER
     Dosage: AS LABELED DIRECTION
     Route: 048
     Dates: start: 201906

REACTIONS (4)
  - Regurgitation [Unknown]
  - Product odour abnormal [None]
  - Product taste abnormal [None]
  - Regurgitation [Unknown]

NARRATIVE: CASE EVENT DATE: 201906
